FAERS Safety Report 4678944-5 (Version None)
Quarter: 2005Q2

REPORT INFORMATION
  Report Type: 
  Country: None (occurrence: None)
  Receive Date: 20050531
  Receipt Date: 20050419
  Transmission Date: 20051028
  Serious: Yes (Other)
  Sender: FDA-Public Use
  Company Number: 2005052337

PATIENT
  Age: 62 Year
  Sex: Male
  Weight: 79.3795 kg

DRUGS (2)
  1. NORVASC [Suspect]
     Indication: HYPERTENSION
     Dosage: 10 MG (10 MG, DAILY)
  2. BENICAR (OLMESARTAN MDEXOMIL) [Concomitant]

REACTIONS (2)
  - COELIAC DISEASE [None]
  - REACTION TO MEDICAL AGENT PRESERVATIVES [None]
